FAERS Safety Report 8788621 (Version 2)
Quarter: 2012Q4

REPORT INFORMATION
  Report Type: 
  Country: SE (occurrence: SE)
  Receive Date: 20120917
  Receipt Date: 20121011
  Transmission Date: 20130627
  Serious: Yes (Other)
  Sender: FDA-Public Use
  Company Number: SE-JNJFOC-20120902784

PATIENT
  Age: 18 Year
  Sex: Female

DRUGS (9)
  1. SIMPONI [Suspect]
     Indication: JUVENILE ARTHRITIS
     Route: 058
     Dates: start: 20110214, end: 20110513
  2. HUMIRA [Suspect]
     Indication: JUVENILE ARTHRITIS
     Route: 058
     Dates: start: 200910, end: 201009
  3. ENBREL [Suspect]
     Indication: JUVENILE ARTHRITIS
     Route: 058
     Dates: start: 201009, end: 201102
  4. METHOTREXATE SODIUM [Suspect]
     Indication: JUVENILE ARTHRITIS
     Route: 065
     Dates: start: 201105
  5. NAPROXEN [Concomitant]
     Route: 065
  6. MORPHINE [Concomitant]
     Indication: PAIN
     Route: 065
  7. OMEPRAZOLE [Concomitant]
     Route: 065
  8. ALVEDON [Concomitant]
     Route: 065
  9. ORUDIS (KETOPROFEN) [Concomitant]
     Route: 065

REACTIONS (3)
  - Cognitive disorder [Not Recovered/Not Resolved]
  - Hypoacusis [Unknown]
  - Visual acuity reduced [Recovering/Resolving]
